FAERS Safety Report 17607005 (Version 1)
Quarter: 2020Q1

REPORT INFORMATION
  Report Type: Report from Study
  Country: IL (occurrence: IL)
  Receive Date: 20200331
  Receipt Date: 20200331
  Transmission Date: 20200409
  Serious: Yes (Death, Other)
  Sender: FDA-Public Use
  Company Number: IL-TEVA-2020-IL-1172508

PATIENT
  Age: 52 Year
  Sex: Male

DRUGS (6)
  1. TACROLIMUS. [Suspect]
     Active Substance: TACROLIMUS
     Dosage: (TARGETED TO A TROUGH-LEVEL OF 10-12NG/ML FOR MONTHS 3-12
     Route: 065
  2. TACROLIMUS. [Suspect]
     Active Substance: TACROLIMUS
     Dosage: TARGETED TO A TROUGH-LEVEL OF 8-10NG/ML AFTER THE FIRST POST TRANSPLANT YEAR
     Route: 065
  3. PREDNISONE. [Suspect]
     Active Substance: PREDNISONE
     Dosage: MAINTENANCE DOSE OF 0.1 MG/KG AFTER 1 YEAR
     Route: 065
  4. TACROLIMUS. [Suspect]
     Active Substance: TACROLIMUS
     Indication: LUNG TRANSPLANT
     Dosage: TARGETED TO A TROUGH-LEVEL OF 12-15NG/ML FOR THE FIRST
     Route: 065
  5. MYCOPHENOLATE MOFETIL. [Suspect]
     Active Substance: MYCOPHENOLATE MOFETIL
     Indication: IMMUNOSUPPRESSANT DRUG THERAPY
     Dosage: 2000 MILLIGRAM DAILY;
     Route: 065
  6. PREDNISONE. [Suspect]
     Active Substance: PREDNISONE
     Indication: IMMUNOSUPPRESSANT DRUG THERAPY
     Dosage: 40 MILLIGRAM DAILY; FORMULATION UNKNOWN

REACTIONS (2)
  - Pulmonary mucormycosis [Recovered/Resolved]
  - Aspergillus infection [Fatal]
